FAERS Safety Report 4478762-7 (Version None)
Quarter: 2004Q4

REPORT INFORMATION
  Report Type: 
  Country: None (occurrence: None)
  Receive Date: 20041019
  Receipt Date: 20041013
  Transmission Date: 20050328
  Serious: Yes (Hospitalization)
  Sender: FDA-Public Use
  Company Number: CH-ROCHE-383114

PATIENT
  Age: 44 Year
  Sex: Female
  Weight: 114 kg

DRUGS (2)
  1. XENICAL [Suspect]
     Indication: OBESITY
     Route: 048
     Dates: start: 20040715, end: 20041011
  2. UNKNOWN DRUG [Concomitant]
     Indication: PSORIASIS
     Dosage: DRUG NAME: OINTMENT FOR PSORIASIS. ROUTE: EXTERNAL.
     Route: 050
     Dates: end: 20030615

REACTIONS (2)
  - ACUTE PSYCHOSIS [None]
  - ANXIETY [None]
